FAERS Safety Report 5157084-5 (Version None)
Quarter: 2006Q4

REPORT INFORMATION
  Report Type: 
  Country: None (occurrence: None)
  Receive Date: 20061127
  Receipt Date: 19980401
  Transmission Date: 20070319
  Serious: Yes (Hospitalization)
  Sender: FDA-Public Use
  Company Number: US-ELI_LILLY_AND_COMPANY-US_980401194

PATIENT
  Age: 16 Year
  Sex: Male

DRUGS (1)
  1. ZYPREXA [Suspect]
     Indication: THINKING ABNORMAL
     Dosage: 7.5 MG, EACH EVENING
     Route: 048
     Dates: start: 19970701

REACTIONS (2)
  - ABNORMAL BEHAVIOUR [None]
  - MANIA [None]
